FAERS Safety Report 15033976 (Version 2)
Quarter: 2018Q3

REPORT INFORMATION
  Report Type: Spontaneous
  Country: FR (occurrence: FR)
  Receive Date: 20180620
  Receipt Date: 20180724
  Transmission Date: 20181010
  Serious: Yes (Hospitalization)
  Sender: FDA-Public Use
  Company Number: FR-SUN PHARMACEUTICAL INDUSTRIES LTD-2018RR-176074

PATIENT
  Age: 70 Year
  Sex: Male

DRUGS (8)
  1. DOMPERIDONE [Concomitant]
     Active Substance: DOMPERIDONE
     Indication: NAUSEA
     Dosage: IN TOTAL
     Route: 048
     Dates: start: 20170728, end: 20170728
  2. TIORFAN 100 MG, GELULE [Suspect]
     Active Substance: RACECADOTRIL
     Indication: DIARRHOEA
     Dosage: 3 DF, DAILY
     Route: 048
     Dates: start: 20170725, end: 20170728
  3. NAUSICALM (DIMENHYDRINATE) [Suspect]
     Active Substance: DIMENHYDRINATE
     Indication: NAUSEA
     Dosage: 3 DF, DAILY
     Route: 048
     Dates: start: 20170711, end: 20170728
  4. BACTRIM [Suspect]
     Active Substance: SULFAMETHOXAZOLE\TRIMETHOPRIM
     Indication: PROSTATITIS
     Dosage: UNK
     Route: 048
     Dates: start: 201606, end: 201608
  5. VESICARE [Suspect]
     Active Substance: SOLIFENACIN SUCCINATE
     Indication: URINARY INCONTINENCE
     Dosage: 5 MG, DAILY
     Route: 048
     Dates: start: 201610, end: 20170725
  6. LOPERAMIDE [Suspect]
     Active Substance: LOPERAMIDE
     Indication: DIARRHOEA
     Dosage: 2 DF, DAILY
     Route: 048
     Dates: start: 20170711, end: 20170725
  7. BACTRIM [Suspect]
     Active Substance: SULFAMETHOXAZOLE\TRIMETHOPRIM
     Dosage: NON PRECISEE
     Route: 048
     Dates: start: 20170725, end: 20170728
  8. LOPERAMIDE [Suspect]
     Active Substance: LOPERAMIDE
     Dosage: 1 DF, DAILY
     Route: 048
     Dates: start: 20170711, end: 20170725

REACTIONS (2)
  - Hepatocellular injury [Recovered/Resolved]
  - Transaminases increased [Recovered/Resolved]

NARRATIVE: CASE EVENT DATE: 20170728
